FAERS Safety Report 12326505 (Version 1)
Quarter: 2016Q2

REPORT INFORMATION
  Report Type: Spontaneous
  Country: US (occurrence: US)
  Receive Date: 20160503
  Receipt Date: 20160503
  Transmission Date: 20160815
  Serious: Yes (Other)
  Sender: FDA-Public Use
  Company Number: US-UCBSA-2016015591

PATIENT
  Sex: Female

DRUGS (2)
  1. VIMPAT [Suspect]
     Active Substance: LACOSAMIDE
     Indication: PRODUCT USED FOR UNKNOWN INDICATION
     Dosage: 100 MG IN MORNING AND 200 MG IN THE EVENING
  2. VIMPAT [Suspect]
     Active Substance: LACOSAMIDE
     Dosage: WEANING DOSE

REACTIONS (11)
  - Fear [Unknown]
  - Thinking abnormal [Unknown]
  - Dizziness [Unknown]
  - Crying [Unknown]
  - Panic attack [Unknown]
  - Agitation [Unknown]
  - Anxiety [Unknown]
  - Restlessness [Unknown]
  - Depression [Unknown]
  - Withdrawal syndrome [Unknown]
  - Drug dependence [Unknown]
